FAERS Safety Report 24060835 (Version 2)
Quarter: 2024Q3

REPORT INFORMATION
  Report Type: Spontaneous
  Country: FR (occurrence: FR)
  Receive Date: 20240708
  Receipt Date: 20240712
  Transmission Date: 20241016
  Serious: Yes (Other)
  Sender: PFIZER
  Company Number: None

PATIENT
  Age: 11 Month
  Sex: Male
  Weight: 10 kg

DRUGS (8)
  1. FLUCONAZOLE [Suspect]
     Active Substance: FLUCONAZOLE
     Indication: Candida infection
     Dosage: UNK
     Dates: start: 20240422, end: 20240429
  2. AUGMENTIN [Suspect]
     Active Substance: AMOXICILLIN\CLAVULANATE POTASSIUM
     Indication: Bacterial infection
     Dosage: UNK
     Dates: start: 20240401, end: 20240411
  3. MESNA [Concomitant]
     Active Substance: MESNA
     Dosage: UNK
     Dates: start: 20240416, end: 20240419
  4. VINCRISTINE SULFATE [Concomitant]
     Active Substance: VINCRISTINE SULFATE
     Dosage: UNK
     Dates: start: 20240413, end: 20240413
  5. CYCLOPHOSPHAMIDE [Concomitant]
     Active Substance: CYCLOPHOSPHAMIDE
     Dosage: UNK
     Dates: start: 20240416, end: 20240419
  6. DOXORUBICIN HYDROCHLORIDE [Concomitant]
     Active Substance: DOXORUBICIN HYDROCHLORIDE
     Dosage: UNK
     Dates: start: 20240419, end: 20240420
  7. LAROTRECTINIB SULFATE [Concomitant]
     Active Substance: LAROTRECTINIB SULFATE
     Dosage: UNK
     Dates: start: 20240419
  8. ACTINOMYCIN D [Concomitant]
     Active Substance: DACTINOMYCIN
     Dosage: UNK
     Dates: start: 20240413, end: 20240413

REACTIONS (1)
  - Jaundice cholestatic [Recovering/Resolving]

NARRATIVE: CASE EVENT DATE: 20240423
